FAERS Safety Report 9348155 (Version 1)
Quarter: 2013Q2

REPORT INFORMATION
  Report Type: Spontaneous
  Country: US (occurrence: None)
  Receive Date: 20130612
  Receipt Date: 20130612
  Transmission Date: 20140414
  Serious: No
  Sender: FDA-Public Use
  Company Number: None

PATIENT
  Sex: 0

DRUGS (1)
  1. LISINOPRIL TABLET USP 5 MG (LISINOPRIL TABLETS USP 5MG) (LISINOPRIL) [Suspect]
     Route: 048
     Dates: start: 201305, end: 20130604

REACTIONS (1)
  - Product label confusion [None]
